FAERS Safety Report 8095553-9 (Version None)
Quarter: 2011Q4

REPORT INFORMATION
  Report Type: 
  Country: None (occurrence: None)
  Receive Date: 20111222
  Receipt Date: 20111003
  Transmission Date: 20120403
  Serious: Yes (Death, Hospitalization)
  Sender: FDA-Public Use
  Company Number: UTC-010760

PATIENT
  Age: 68 Year
  Sex: Male

DRUGS (1)
  1. TYVASO [Suspect]
     Indication: PULMONARY ARTERIAL HYPERTENSION
     Dosage: 216 MCG (54 MCG, 4 IN 1 D), INHALATION
     Route: 055
     Dates: start: 20110609

REACTIONS (5)
  - DISEASE PROGRESSION [None]
  - DYSPNOEA [None]
  - PULMONARY HYPERTENSION [None]
  - CHRONIC OBSTRUCTIVE PULMONARY DISEASE [None]
  - OEDEMA PERIPHERAL [None]
